FAERS Safety Report 4561222-2 (Version None)
Quarter: 2005Q1

REPORT INFORMATION
  Report Type: 
  Country: None (occurrence: None)
  Receive Date: 20050121
  Receipt Date: 20050110
  Transmission Date: 20050727
  Serious: Yes (Hospitalization)
  Sender: FDA-Public Use
  Company Number: MEDI-0002553

PATIENT
  Age: 57 Year
  Sex: Male
  Weight: 111 kg

DRUGS (19)
  1. ETHYOL [Suspect]
     Indication: CHEMOTHERAPY
     Dosage: SUBCUTANEOUS
     Route: 058
     Dates: start: 20041103, end: 20041201
  2. ETHYOL [Suspect]
     Indication: RADIOTHERAPY
     Dosage: SUBCUTANEOUS
     Route: 058
     Dates: start: 20041103, end: 20041201
  3. RADIATION THERAPY [Concomitant]
  4. PROCHLORPERAZINE [Concomitant]
  5. MAGNESIUM SULFATE [Concomitant]
  6. OYSTER CALCIUM [Concomitant]
  7. TEQUIN [Concomitant]
  8. MAGNESIUM CHLORIDE [Concomitant]
  9. CISPLATIN [Concomitant]
  10. ZOFRAN [Concomitant]
  11. EMEND [Concomitant]
  12. DEXAMETHASONE [Concomitant]
  13. FAMOTIDINE [Concomitant]
  14. BENADRYL [Concomitant]
  15. REGLAN [Concomitant]
  16. BIAFINE CREAM (PROPYLENE GLYCOL, TROLAMINE, ETHYLENE GLYCOL MONOSTEARA [Concomitant]
  17. LASIX [Concomitant]
  18. XYLOXYLIN SUSPENSION [Concomitant]
  19. CARAFATE [Concomitant]

REACTIONS (20)
  - ARTHRALGIA [None]
  - ASTHENIA [None]
  - CONSTIPATION [None]
  - DEEP VEIN THROMBOSIS [None]
  - DEHYDRATION [None]
  - DYSPHAGIA [None]
  - FATIGUE [None]
  - INSOMNIA [None]
  - JOINT SWELLING [None]
  - LABORATORY TEST ABNORMAL [None]
  - MALNUTRITION [None]
  - MUCOSAL INFLAMMATION [None]
  - NAUSEA [None]
  - NECK PAIN [None]
  - OESOPHAGITIS [None]
  - ORTHOSTATIC HYPOTENSION [None]
  - RADIATION MUCOSITIS [None]
  - RADIATION SKIN INJURY [None]
  - VOMITING [None]
  - WEIGHT DECREASED [None]
